FAERS Safety Report 8175050-2 (Version None)
Quarter: 2012Q2

REPORT INFORMATION
  Report Type: 
  Country: None (occurrence: None)
  Receive Date: 20120227
  Receipt Date: 20120105
  Transmission Date: 20120825
  Serious: Yes (Other)
  Sender: FDA-Public Use
  Company Number: DSA_55207_2012

PATIENT
  Sex: Female

DRUGS (8)
  1. ETOMIDATE [Concomitant]
  2. ROCEPHIN [Suspect]
     Indication: SEPSIS
     Dosage: DF, INTRAVENOUS (NOT OTHERWISE SPECIFIED)
     Route: 042
  3. FLAGYL [Suspect]
     Indication: SEPSIS
     Dosage: FREQUENCY UNKNOWN INTRAVENOUS DRIP
     Route: 041
  4. PENTOTHAL [Suspect]
     Indication: PRODUCT USED FOR UNKNOWN INDICATION
     Dosage: DF
  5. SUCCINYLCHOLINE CHLORIDE [Concomitant]
  6. GENTAMICIN [Concomitant]
  7. PHENOBARBITAL TAB [Suspect]
     Indication: PRODUCT USED FOR UNKNOWN INDICATION
     Dosage: DF
  8. TEGRETOL [Suspect]
     Indication: PRODUCT USED FOR UNKNOWN INDICATION
     Dosage: DF

REACTIONS (10)
  - ESCHERICHIA INFECTION [None]
  - ERYTHEMA [None]
  - BLOOD CULTURE POSITIVE [None]
  - DERMATITIS EXFOLIATIVE [None]
  - COMA [None]
  - HYPERTHERMIA [None]
  - STATUS EPILEPTICUS [None]
  - RASH MORBILLIFORM [None]
  - RASH MACULO-PAPULAR [None]
  - SEPSIS [None]
